FAERS Safety Report 5694771-4 (Version None)
Quarter: 2008Q2

REPORT INFORMATION
  Report Type: 
  Country: None (occurrence: None)
  Receive Date: 20080404
  Receipt Date: 20080401
  Transmission Date: 20081010
  Serious: Yes (Hospitalization)
  Sender: FDA-Public Use
  Company Number: JP-ASTRAZENECA-2008AP02093

PATIENT
  Age: 60 Year
  Sex: Female

DRUGS (5)
  1. CRESTOR [Suspect]
     Indication: HYPERCHOLESTEROLAEMIA
     Route: 048
     Dates: end: 20080303
  2. MEIACT [Concomitant]
     Dosage: 500 MG/DAY
     Route: 048
     Dates: start: 20080227, end: 20080229
  3. AMLODIN [Concomitant]
     Route: 048
  4. MICARDIS [Concomitant]
     Route: 048
  5. THEO-DUR [Concomitant]
     Route: 048

REACTIONS (2)
  - MYOPATHY [None]
  - RESPIRATORY TRACT INFECTION [None]
